FAERS Safety Report 24014886 (Version 1)
Quarter: 2024Q2

REPORT INFORMATION
  Report Type: Spontaneous
  Country: FR (occurrence: FR)
  Receive Date: 20240626
  Receipt Date: 20240626
  Transmission Date: 20240715
  Serious: Yes (Other)
  Sender: FDA-Public Use
  Company Number: None

PATIENT
  Age: 58 Year
  Sex: Female

DRUGS (1)
  1. ZOLPIDEM [Suspect]
     Active Substance: ZOLPIDEM TARTRATE
     Indication: Product used for unknown indication
     Dosage: DOSAGE: 30 ARB^U
     Route: 048
     Dates: start: 2006

REACTIONS (2)
  - Drug dependence [Unknown]
  - Substance abuser [Unknown]

NARRATIVE: CASE EVENT DATE: 20060101
